FAERS Safety Report 19914251 (Version 1)
Quarter: 2021Q4

REPORT INFORMATION
  Report Type: Spontaneous
  Country: JP (occurrence: JP)
  Receive Date: 20211005
  Receipt Date: 20211005
  Transmission Date: 20220304
  Serious: Yes (Other)
  Sender: FDA-Public Use
  Company Number: JP-PHARMATHEN-GPV2021PHT052948

PATIENT
  Age: 27 Year
  Sex: Female

DRUGS (1)
  1. DIMETHYL FUMARATE [Suspect]
     Active Substance: DIMETHYL FUMARATE
     Indication: Multiple sclerosis

REACTIONS (2)
  - Myelitis transverse [Recovered/Resolved]
  - Anti-myelin-associated glycoprotein antibodies positive [Recovered/Resolved]
